FAERS Safety Report 8872047 (Version 1)
Quarter: 2012Q4

REPORT INFORMATION
  Report Type: 
  Country: US (occurrence: US)
  Receive Date: 20121023
  Receipt Date: 20121023
  Transmission Date: 20130627
  Serious: No
  Sender: FDA-Public Use
  Company Number: US-ASTELLAS-2012US002794

PATIENT

DRUGS (1)
  1. PROGRAF [Suspect]
     Indication: LIVER TRANSPLANT
     Dosage: 4 mg, UID/QD
     Route: 048
     Dates: start: 20010821

REACTIONS (2)
  - Vomiting [Recovered/Resolved]
  - Influenza [Recovered/Resolved]
